FAERS Safety Report 14361794 (Version 1)
Quarter: 2018Q1

REPORT INFORMATION
  Report Type: Report from Study
  Country: US (occurrence: US)
  Receive Date: 20180108
  Receipt Date: 20180108
  Transmission Date: 20180509
  Serious: Yes (Other)
  Sender: FDA-Public Use
  Company Number: US-ROCHE-2050975

PATIENT
  Age: 16 Year
  Sex: Male
  Weight: 58.4 kg

DRUGS (3)
  1. NUTROPIN AQ [Suspect]
     Active Substance: SOMATROPIN
     Indication: GROWTH FAILURE
     Dosage: 2.4 ALT WITH 2.6 MG
     Route: 058
  2. NUTROPIN AQ [Suspect]
     Active Substance: SOMATROPIN
     Indication: GROWTH HORMONE DEFICIENCY
  3. VITAMIN D2 [Concomitant]
     Active Substance: ERGOCALCIFEROL
     Dosage: 2000 UNIT
     Route: 048

REACTIONS (10)
  - Chondropathy [Unknown]
  - Insulin-like growth factor increased [Unknown]
  - Photophobia [Unknown]
  - Headache [Recovered/Resolved]
  - Hand fracture [Unknown]
  - Anti-transglutaminase antibody increased [Unknown]
  - Injection site bruising [Unknown]
  - Injection site mass [Not Recovered/Not Resolved]
  - Bone density decreased [Unknown]
  - Migraine [Not Recovered/Not Resolved]

NARRATIVE: CASE EVENT DATE: 20120830
